FAERS Safety Report 6832849-X (Version None)
Quarter: 2010Q3

REPORT INFORMATION
  Report Type: 
  Country: None (occurrence: None)
  Receive Date: 20100712
  Receipt Date: 20070325
  Transmission Date: 20110219
  Serious: No
  Sender: FDA-Public Use
  Company Number: US-PFIZER INC-2007023660

PATIENT
  Sex: Male

DRUGS (5)
  1. CHANTIX [Suspect]
  2. TOPROL-XL [Concomitant]
  3. CARDIZEM [Concomitant]
  4. METFORMIN HCL [Concomitant]
  5. AMARYL [Concomitant]

REACTIONS (1)
  - DRUG ADMINISTRATION ERROR [None]
